FAERS Safety Report 22355778 (Version 5)
Quarter: 2023Q4

REPORT INFORMATION
  Report Type: Spontaneous
  Country: GB (occurrence: GB)
  Receive Date: 20230523
  Receipt Date: 20231215
  Transmission Date: 20240109
  Serious: Yes (Hospitalization, Other)
  Sender: FDA-Public Use
  Company Number: GB-ROCHE-3180009

PATIENT
  Age: 59 Year
  Weight: 51 kg

DRUGS (11)
  1. LENALIDOMIDE [Suspect]
     Active Substance: LENALIDOMIDE
     Indication: Follicular lymphoma
     Dosage: ONCE DAILY FOR 1 - 21 DAYS. ON 26/MAR/2023 LAST DOSE OF DRUG ADMINISTERED PRIOR TO NEUTROPENIA.
     Route: 048
     Dates: start: 20220929
  2. LENALIDOMIDE [Suspect]
     Active Substance: LENALIDOMIDE
     Dosage: UNK UNK, QD, CUMULATIVE DOSE: 800 MG
     Route: 065
  3. LENALIDOMIDE [Suspect]
     Active Substance: LENALIDOMIDE
     Dosage: 20 MG, ONCE DAILY FOR 1 - 21 DAYS. ON 26MAR2023 LAST DOSE OF DRUG ADMINISTERED
     Route: 048
     Dates: start: 20220929, end: 20230326
  4. CYCLOPHOSPHAMIDE [Suspect]
     Active Substance: CYCLOPHOSPHAMIDE
     Indication: Follicular lymphoma
     Dosage: ON 17/JUN/2022, THE PATIENT RECEIVED LAST DOSE OF STUDY DRUG
     Route: 065
     Dates: start: 20211111
  5. OBINUTUZUMAB [Suspect]
     Active Substance: OBINUTUZUMAB
     Indication: Follicular lymphoma
     Dosage: ON 17/JUN/2022, THE PATIENT RECEIVED LAST DOSE OF STUDY DRUG.ON 05/MAR/2023 THE PATIENT RECEIVED LA
     Route: 042
     Dates: start: 20211111
  6. PREDNISONE [Suspect]
     Active Substance: PREDNISONE
     Indication: Follicular lymphoma
     Dosage: ON 17/JUN/2022, THE PATIENT RECEIVED LAST DOSE OF STUDY DRUG.
     Route: 065
     Dates: start: 20211111
  7. VINCRISTINE [Suspect]
     Active Substance: VINCRISTINE
     Indication: Follicular lymphoma
     Dosage: ON 17/JUN/2022, THE PATIENT RECEIVED LAST DOSE OF STUDY DRUG
     Route: 065
     Dates: start: 20211111
  8. VINCRISTINE SULFATE [Suspect]
     Active Substance: VINCRISTINE SULFATE
     Indication: Product used for unknown indication
     Route: 065
  9. PIPERACILLIN SODIUM\TAZOBACTAM SODIUM [Concomitant]
     Active Substance: PIPERACILLIN SODIUM\TAZOBACTAM SODIUM
     Indication: Product used for unknown indication
     Dosage: 4.5 G(PERSISTENT 1 WEEK; START DATE: 27-MAR-2023)
     Route: 042
  10. PIPERACILLIN SODIUM\TAZOBACTAM SODIUM [Concomitant]
     Active Substance: PIPERACILLIN SODIUM\TAZOBACTAM SODIUM
     Dosage: 4.5 GRAM
     Route: 042
     Dates: start: 20220820
  11. PIPERACILLIN SODIUM\TAZOBACTAM SODIUM [Concomitant]
     Active Substance: PIPERACILLIN SODIUM\TAZOBACTAM SODIUM
     Dosage: 4.5 GRAM (PERSISTENT 1 WEEK; START DATE: 27-MAR-2023, INTRAVENOUS DRIP)
     Route: 042

REACTIONS (7)
  - Neutropenic sepsis [Recovering/Resolving]
  - Neutropenia [Recovering/Resolving]
  - Malaise [Unknown]
  - Lethargy [Unknown]
  - C-reactive protein increased [Unknown]
  - COVID-19 [Recovered/Resolved]
  - Pneumonia [Unknown]

NARRATIVE: CASE EVENT DATE: 20220820
